FAERS Safety Report 7522976-6 (Version None)
Quarter: 2011Q2

REPORT INFORMATION
  Report Type: 
  Country: None (occurrence: None)
  Receive Date: 20110525
  Receipt Date: 20110510
  Transmission Date: 20111010
  Serious: Yes (Other)
  Sender: FDA-Public Use
  Company Number: 2010MA004401

PATIENT
  Sex: Female
  Weight: 77.1115 kg

DRUGS (23)
  1. MOTRIN [Concomitant]
  2. TOPAMAX [Concomitant]
  3. MAXAIR [Concomitant]
  4. EFFEXOR [Concomitant]
  5. CALAN [Concomitant]
  6. DIAMOX [Concomitant]
  7. PREDNISONE [Concomitant]
  8. SOMA [Concomitant]
  9. ZITHROMAX [Concomitant]
  10. VALIUM [Concomitant]
  11. NORTRIPTYLINE HCL [Concomitant]
  12. PROZAC [Concomitant]
  13. NEURONTIN [Concomitant]
  14. AMBIEN [Concomitant]
  15. ACCOLATE [Concomitant]
  16. BACTRIM [Concomitant]
  17. ADVAIR DISKUS 100/50 [Concomitant]
  18. ULTRAM [Concomitant]
  19. PROTONIX [Concomitant]
  20. METOCLOPRAMIDE [Suspect]
     Dosage: 10 MG, PO
     Route: 048
     Dates: start: 20030101, end: 20090701
  21. TARKA [Concomitant]
  22. LUNESTA [Concomitant]
  23. CYMBALTA [Concomitant]

REACTIONS (16)
  - ECONOMIC PROBLEM [None]
  - FATIGUE [None]
  - POOR QUALITY SLEEP [None]
  - FALL [None]
  - HEPATITIS [None]
  - EMOTIONAL DISORDER [None]
  - NOCTURIA [None]
  - TARDIVE DYSKINESIA [None]
  - SOMNOLENCE [None]
  - EXTRAPYRAMIDAL DISORDER [None]
  - PRODUCTIVE COUGH [None]
  - CHRONIC OBSTRUCTIVE PULMONARY DISEASE [None]
  - DYSKINESIA [None]
  - PERIODIC LIMB MOVEMENT DISORDER [None]
  - CYSTITIS [None]
  - DYSPNOEA [None]
